FAERS Safety Report 7985175-X (Version None)
Quarter: 2011Q4

REPORT INFORMATION
  Report Type: 
  Country: None (occurrence: None)
  Receive Date: 20111216
  Receipt Date: 20111209
  Transmission Date: 20120403
  Serious: Yes (Other)
  Sender: FDA-Public Use
  Company Number: PHHY2011DE099338

PATIENT
  Sex: Male
  Weight: 75 kg

DRUGS (1)
  1. VOLTAREN [Suspect]
     Indication: ARTHROPATHY
     Dosage: 4 CAPSULES AT ONCE
     Route: 048

REACTIONS (4)
  - OVERDOSE [None]
  - DISORIENTATION [None]
  - DISSOCIATION [None]
  - CONFUSIONAL STATE [None]
